FAERS Safety Report 21843476 (Version 1)
Quarter: 2023Q1

REPORT INFORMATION
  Report Type: Spontaneous
  Country: US (occurrence: US)
  Receive Date: 20230110
  Receipt Date: 20230110
  Transmission Date: 20230417
  Serious: No
  Sender: FDA-Public Use
  Company Number: US-drreddys-SPO/USA/22/0158562

PATIENT
  Age: 73 Year
  Sex: Female

DRUGS (22)
  1. LENALIDOMIDE [Suspect]
     Active Substance: LENALIDOMIDE
     Indication: Plasma cell myeloma
     Dosage: TO TAKE IT FOR ONLY 14 DAYS AND BE OFF FOR 7 DAYS WAS TOLD TO RESTART YESTERDAY 12-13-2022 AND TO TA
     Route: 048
  2. ATORVASTATIN [Concomitant]
     Active Substance: ATORVASTATIN
     Indication: Product used for unknown indication
  3. FEXOFENADINE HCL [Concomitant]
     Active Substance: FEXOFENADINE HYDROCHLORIDE
     Indication: Product used for unknown indication
  4. METFORMIN [Concomitant]
     Active Substance: METFORMIN HYDROCHLORIDE
     Indication: Product used for unknown indication
  5. MONTELUKAST [Concomitant]
     Active Substance: MONTELUKAST SODIUM
     Indication: Product used for unknown indication
  6. NALOXONE HYDROCHLORIDE [Concomitant]
     Active Substance: NALOXONE HYDROCHLORIDE
     Indication: Product used for unknown indication
     Dosage: LIQ 4MG/0.1M
  7. PANTOPRAZOLE SODIUM [Concomitant]
     Active Substance: PANTOPRAZOLE SODIUM
     Indication: Product used for unknown indication
  8. ZOLEDRONIC ACID [Concomitant]
     Active Substance: ZOLEDRONIC ACID
     Indication: Product used for unknown indication
     Dosage: 5MG/100M
  9. LINZESS CAP 290MCG [Concomitant]
     Indication: Product used for unknown indication
  10. MULTIVITAMIN TAB [Concomitant]
     Indication: Product used for unknown indication
  11. VITAMIN D TAB 25 MCG(1000 [Concomitant]
     Indication: Product used for unknown indication
  12. ALBUTEROL SU AER 108 (90 [Concomitant]
     Indication: Product used for unknown indication
     Dosage: AER 108 (90
  13. CARISOPRODOL TAB 350MG [Concomitant]
     Indication: Product used for unknown indication
  14. COLLAGEN PLU CAP 740-125M [Concomitant]
     Indication: Product used for unknown indication
     Dosage: 740-125M
  15. DARZALEX SOL 400MG/20ML [Concomitant]
     Indication: Product used for unknown indication
     Dosage: 400MG/20ML
  16. DEXAMETHASONE [Concomitant]
     Active Substance: DEXAMETHASONE
     Indication: Product used for unknown indication
  17. FUROSEMIDE TAB 20MG [Concomitant]
     Indication: Product used for unknown indication
  18. GABAPENTIN [Concomitant]
     Active Substance: GABAPENTIN
     Indication: Product used for unknown indication
  19. OXYCODONE-AC TAB 10-325MG [Concomitant]
     Indication: Product used for unknown indication
     Dosage: 10-325MG
  20. POTASSIUM CH TBC 20MEQ [Concomitant]
     Indication: Product used for unknown indication
  21. VITAMIN E [Concomitant]
     Active Substance: .ALPHA.-TOCOPHEROL
     Indication: Product used for unknown indication
     Dosage: 400 UNIT
  22. ZYRTEC ALLER CAP 10MG [Concomitant]
     Indication: Product used for unknown indication

REACTIONS (4)
  - Alopecia [Unknown]
  - Blood calcium decreased [Unknown]
  - Rash [Unknown]
  - Product use issue [Unknown]
